FAERS Safety Report 8098833-6 (Version None)
Quarter: 2012Q1

REPORT INFORMATION
  Report Type: 
  Country: None (occurrence: None)
  Receive Date: 20120129
  Receipt Date: 20111010
  Transmission Date: 20120608
  Serious: No
  Sender: FDA-Public Use
  Company Number: US-ABBOTT-11P-163-0857589-00

PATIENT
  Age: 43 Year
  Sex: Male

DRUGS (6)
  1. HUMIRA [Suspect]
     Indication: CROHN'S DISEASE
     Dosage: LOADING DOSE
     Dates: start: 20110914, end: 20110914
  2. HUMIRA [Suspect]
     Dates: start: 20110928, end: 20110928
  3. BENADRYL [Concomitant]
     Indication: HYPERSENSITIVITY
  4. MELOXICAM [Concomitant]
     Indication: PRODUCT USED FOR UNKNOWN INDICATION
     Dosage: A DAY
  5. TRAZODONE HCL [Concomitant]
     Indication: INSOMNIA
     Dosage: AT BEDTIME
  6. FLUOXETINE [Concomitant]
     Indication: PRODUCT USED FOR UNKNOWN INDICATION
     Dosage: DAILY

REACTIONS (6)
  - PAIN [None]
  - HEADACHE [None]
  - ARTHRALGIA [None]
  - URTICARIA [None]
  - FOLLICULITIS [None]
  - RASH PAPULAR [None]
